FAERS Safety Report 4646476-6 (Version None)
Quarter: 2005Q2

REPORT INFORMATION
  Report Type: 
  Country: None (occurrence: None)
  Receive Date: 20050427
  Receipt Date: 20040421
  Transmission Date: 20051028
  Serious: No
  Sender: FDA-Public Use
  Company Number: US-GLAXOSMITHKLINE-A0507923A

PATIENT
  Age: 7 Year
  Sex: Male

DRUGS (1)
  1. FLOVENT [Suspect]
     Indication: ILL-DEFINED DISORDER
     Dosage: 220PUFF FOUR TIMES PER DAY
     Route: 055
     Dates: start: 20030801

REACTIONS (1)
  - GROWTH RETARDATION [None]
